FAERS Safety Report 23503021 (Version 1)
Quarter: 2024Q1

REPORT INFORMATION
  Report Type: Spontaneous
  Country: US (occurrence: US)
  Receive Date: 20240208
  Receipt Date: 20240208
  Transmission Date: 20240410
  Serious: No
  Sender: FDA-Public Use
  Company Number: US-INTRA-CELLULAR THERAPIES, INC.-2023ICT01565

PATIENT
  Age: 56 Year
  Sex: Female

DRUGS (9)
  1. CAPLYTA [Suspect]
     Active Substance: LUMATEPERONE
     Dosage: 42 MG, 1X/DAY
     Route: 048
  2. LITHIUM [Concomitant]
     Active Substance: LITHIUM
     Dosage: 300 UNK
  3. DIAZEPAM [Concomitant]
     Active Substance: DIAZEPAM
     Dosage: 5 MG, 2X/DAY
  4. QUETIAPINE [Concomitant]
     Active Substance: QUETIAPINE
     Dosage: 50 MG, AT NIGHT
  5. CLONAZEPAM [Concomitant]
     Active Substance: CLONAZEPAM
     Dosage: UNK, AS NEEDED
  6. TIZANIDINE [Concomitant]
     Active Substance: TIZANIDINE
  7. FLUTICASONE [Concomitant]
     Active Substance: FLUTICASONE
  8. ONDANSETRON [Concomitant]
     Active Substance: ONDANSETRON
  9. HYDROCODONE [Concomitant]
     Active Substance: HYDROCODONE
     Dosage: UNK, AS NEEDED

REACTIONS (6)
  - Balance disorder [Recovered/Resolved]
  - Feeling abnormal [Recovered/Resolved]
  - Brain fog [Recovered/Resolved]
  - Dizziness [Recovered/Resolved]
  - Fall [Recovered/Resolved]
  - Tremor [Recovered/Resolved]

NARRATIVE: CASE EVENT DATE: 20230101
